FAERS Safety Report 15858624 (Version 4)
Quarter: 2019Q1

REPORT INFORMATION
  Report Type: Spontaneous
  Country: GB (occurrence: GB)
  Receive Date: 20190123
  Receipt Date: 20190206
  Transmission Date: 20190417
  Serious: Yes (Death)
  Sender: FDA-Public Use
  Company Number: GB-ELI_LILLY_AND_COMPANY-GB201901008661

PATIENT
  Age: 45 Year
  Sex: Female
  Weight: 124.9 kg

DRUGS (28)
  1. SENNA ALEXANDRINA [Concomitant]
     Active Substance: SENNA LEAF
     Dosage: 1-2 TAB 1-2XDAILY UNK
     Dates: start: 20100203
  2. TRIMETHOPRIM. [Concomitant]
     Active Substance: TRIMETHOPRIM
     Indication: URINARY TRACT INFECTION
     Dosage: 400 MG, UNKNOWN
     Route: 048
     Dates: start: 20100218, end: 20100218
  3. CANESTEN [Concomitant]
     Active Substance: CLOTRIMAZOLE
     Indication: CANDIDA INFECTION
     Dosage: 500 MG, UNKNOWN
     Route: 067
     Dates: start: 20100217, end: 20100217
  4. MIRTAZAPINE. [Concomitant]
     Active Substance: MIRTAZAPINE
     Indication: PRODUCT USED FOR UNKNOWN INDICATION
     Dosage: 45 MG, DAILY
     Route: 065
     Dates: start: 20100128, end: 20100219
  5. MOVCOL [Concomitant]
     Indication: CONSTIPATION
     Dosage: 2 DF, DAILY
     Dates: start: 20100205, end: 20100219
  6. TEMAZEPAM. [Concomitant]
     Active Substance: TEMAZEPAM
     Indication: PRODUCT USED FOR UNKNOWN INDICATION
     Dosage: 10 MG, DAILY
     Route: 065
     Dates: start: 20100128, end: 20100219
  7. GLICLAZIDE [Concomitant]
     Active Substance: GLICLAZIDE
     Dosage: 160 MG, DAILY
     Route: 065
     Dates: start: 20100128, end: 20100219
  8. ZOPICLONE [Concomitant]
     Active Substance: ZOPICLONE
     Indication: PRODUCT USED FOR UNKNOWN INDICATION
     Dosage: 7.5 MG, DAILY
     Route: 065
  9. SENNA ALEXANDRINA [Concomitant]
     Active Substance: SENNA LEAF
     Indication: CONSTIPATION
     Dosage: UNK, UNKNOWN
     Route: 065
  10. RAMIPRIL. [Concomitant]
     Active Substance: RAMIPRIL
     Indication: PRODUCT USED FOR UNKNOWN INDICATION
     Dosage: 5 MG, DAILY
     Dates: start: 20100128, end: 20100219
  11. METFORMIN [Concomitant]
     Active Substance: METFORMIN HYDROCHLORIDE
     Dosage: 2550 MG, DAILY
     Dates: start: 20100128, end: 20100219
  12. OMEPRAZOLE. [Concomitant]
     Active Substance: OMEPRAZOLE
     Indication: PRODUCT USED FOR UNKNOWN INDICATION
     Dosage: 20 MG, PRN
     Route: 065
  13. OLANZAPINE. [Suspect]
     Active Substance: OLANZAPINE
     Indication: PRODUCT USED FOR UNKNOWN INDICATION
     Dosage: 20 MG, DAILY
     Route: 048
     Dates: start: 20100128, end: 20100216
  14. OLANZAPINE. [Suspect]
     Active Substance: OLANZAPINE
     Dosage: 10 MG, UNKNOWN
     Route: 048
     Dates: start: 20100217, end: 20100219
  15. SIMVASTATIN. [Concomitant]
     Active Substance: SIMVASTATIN
     Indication: PRODUCT USED FOR UNKNOWN INDICATION
     Dosage: 20 MG, DAILY
     Route: 065
     Dates: start: 20100128, end: 20100219
  16. PHOSPHATE [POTASSIUM BICARBONATE;SODIUM PHOSP [Concomitant]
     Indication: CONSTIPATION
     Dosage: UNK, UNKNOWN
     Route: 054
  17. MIRTAZAPINE. [Concomitant]
     Active Substance: MIRTAZAPINE
     Dosage: 30 MG, DAILY
     Route: 065
     Dates: start: 20100128, end: 20100219
  18. DIHYDROCODEINE [Concomitant]
     Active Substance: DIHYDROCODEINE
     Indication: PRODUCT USED FOR UNKNOWN INDICATION
     Dosage: UNK, TID, 30-60MG
     Route: 065
     Dates: start: 20100128, end: 20100219
  19. ZAPONEX [Suspect]
     Active Substance: CLOZAPINE
     Indication: SCHIZOPHRENIA
     Dosage: 25MG AND 100MG INCREASED TO 125MG MORNING AND 200MG NIGHT
     Route: 048
     Dates: start: 20100201, end: 20100219
  20. GABAPENTIN. [Concomitant]
     Active Substance: GABAPENTIN
     Indication: PRODUCT USED FOR UNKNOWN INDICATION
     Dosage: 900 MG, DAILY
     Route: 065
     Dates: start: 20100128, end: 20100219
  21. DIAZEPAM. [Concomitant]
     Active Substance: DIAZEPAM
     Indication: PRODUCT USED FOR UNKNOWN INDICATION
     Dosage: 5 MG, DAILY
     Dates: start: 20100128, end: 20100219
  22. DIAZEPAM. [Concomitant]
     Active Substance: DIAZEPAM
     Dosage: 20 MG, DAILY
     Dates: start: 20100128, end: 20100219
  23. LACTULOSE. [Concomitant]
     Active Substance: LACTULOSE
     Indication: CONSTIPATION
     Dosage: 30 ML, DAILY
     Route: 048
     Dates: start: 20100204, end: 20100219
  24. MOVCOL [Concomitant]
     Dosage: 4 DF, DAILY
     Route: 065
     Dates: start: 20100205, end: 20100219
  25. GLICLAZIDE [Concomitant]
     Active Substance: GLICLAZIDE
     Indication: PRODUCT USED FOR UNKNOWN INDICATION
     Dosage: 80 MG, DAILY
     Route: 065
     Dates: start: 20100128, end: 20100219
  26. METFORMIN [Concomitant]
     Active Substance: METFORMIN HYDROCHLORIDE
     Indication: PRODUCT USED FOR UNKNOWN INDICATION
     Dosage: 850 MG, DAILY
     Dates: start: 20100128, end: 20100219
  27. LORAZEPAM. [Concomitant]
     Active Substance: LORAZEPAM
     Indication: PRODUCT USED FOR UNKNOWN INDICATION
     Dosage: UNK, PRN
     Route: 065
  28. SALBUTAMOL [Concomitant]
     Active Substance: ALBUTEROL
     Indication: URINARY TRACT INFECTION
     Dosage: UNK, UNKNOWN
     Route: 055

REACTIONS (18)
  - Toxicity to various agents [Fatal]
  - Hepatic failure [Fatal]
  - Cardiac arrest [Fatal]
  - Tachycardia [Fatal]
  - Malaise [Fatal]
  - Incontinence [Fatal]
  - Aortic arteriosclerosis [Fatal]
  - Salivary hypersecretion [Fatal]
  - Steatohepatitis [Fatal]
  - Hypertension [Fatal]
  - Urinary tract infection [Fatal]
  - Myocardial infarction [Fatal]
  - Hepatic cirrhosis [Fatal]
  - Arteriosclerosis coronary artery [Fatal]
  - Malaise [Fatal]
  - Joint swelling [Fatal]
  - Vulvovaginal candidiasis [Fatal]
  - Constipation [Fatal]

NARRATIVE: CASE EVENT DATE: 201002
